FAERS Safety Report 8464573-4 (Version None)
Quarter: 2012Q2

REPORT INFORMATION
  Report Type: 
  Country: None (occurrence: None)
  Receive Date: 20120620
  Receipt Date: 20120620
  Transmission Date: 20120825
  Serious: No
  Sender: FDA-Public Use
  Company Number: None

PATIENT
  Age: 54 Year
  Sex: Female

DRUGS (1)
  1. PEGASYS [Suspect]
     Indication: HEPATITIS C
     Dosage: 180MG SQ WEEKLY
     Dates: start: 20120226, end: 20120618

REACTIONS (3)
  - AGGRESSION [None]
  - WEIGHT DECREASED [None]
  - DEMENTIA [None]
